FAERS Safety Report 25717613 (Version 2)
Quarter: 2025Q3

REPORT INFORMATION
  Report Type: Spontaneous
  Country: JP (occurrence: JP)
  Receive Date: 20250822
  Receipt Date: 20250827
  Transmission Date: 20251021
  Serious: Yes (Death)
  Sender: PFIZER
  Company Number: JP-PFIZER INC-PV202500100154

PATIENT
  Age: 21 Year
  Sex: Female

DRUGS (6)
  1. TRIAZOLAM [Suspect]
     Active Substance: TRIAZOLAM
     Indication: Bipolar disorder
  2. TRIAZOLAM [Suspect]
     Active Substance: TRIAZOLAM
     Indication: Insomnia
  3. FLUNITRAZEPAM [Suspect]
     Active Substance: FLUNITRAZEPAM
     Indication: Bipolar disorder
  4. FLUNITRAZEPAM [Suspect]
     Active Substance: FLUNITRAZEPAM
     Indication: Insomnia
  5. OLANZAPINE [Suspect]
     Active Substance: OLANZAPINE
     Indication: Bipolar disorder
  6. OLANZAPINE [Suspect]
     Active Substance: OLANZAPINE
     Indication: Insomnia

REACTIONS (1)
  - Toxicity to various agents [Fatal]
